FAERS Safety Report 5660517-9 (Version None)
Quarter: 2008Q1

REPORT INFORMATION
  Report Type: 
  Country: None (occurrence: None)
  Receive Date: 20080311
  Receipt Date: 20071107
  Transmission Date: 20080703
  Serious: No
  Sender: FDA-Public Use
  Company Number: US-BAYER-200713675BCC

PATIENT
  Age: 83 Year
  Sex: Male
  Weight: 68 kg

DRUGS (10)
  1. ALEVE [Suspect]
     Indication: ARTHRITIS
     Route: 048
     Dates: start: 20070901
  2. NATTO BP PLUS [Concomitant]
  3. KIDNEY CLEAR [Concomitant]
  4. CO Q10 [Concomitant]
  5. CHELATON [Concomitant]
  6. CENTRUM [Concomitant]
  7. LIPITOR [Concomitant]
  8. MYLANTA [Concomitant]
  9. ZETIA [Concomitant]
  10. ECOTRIN [Concomitant]

REACTIONS (1)
  - ABDOMINAL PAIN UPPER [None]
